FAERS Safety Report 5274972-X (Version None)
Quarter: 2007Q1

REPORT INFORMATION
  Report Type: 
  Country: None (occurrence: None)
  Receive Date: 20061207
  Receipt Date: 20051227
  Transmission Date: 20070707
  Serious: Yes (Hospitalization)
  Sender: FDA-Public Use
  Company Number: 2005UW19485

PATIENT
  Sex: Male

DRUGS (1)
  1. TOPROL-XL [Suspect]

REACTIONS (2)
  - CHEST PAIN [None]
  - DYSPNOEA [None]
